FAERS Safety Report 25275168 (Version 2)
Quarter: 2025Q2

REPORT INFORMATION
  Report Type: Other
  Country: US (occurrence: US)
  Receive Date: 20250506
  Receipt Date: 20250510
  Transmission Date: 20250717
  Serious: Yes (Other)
  Sender: MADRIGAL PHARMACEUTICALS
  Company Number: US-MADRIGAL PHARMACEUTICALS, INC-2025REZ2061

PATIENT

DRUGS (2)
  1. REZDIFFRA [Suspect]
     Active Substance: RESMETIROM
     Indication: Metabolic dysfunction-associated steatohepatitis
     Dosage: 80 MILLIGRAM, QD
     Route: 048
     Dates: start: 202411
  2. REZDIFFRA [Suspect]
     Active Substance: RESMETIROM
     Dosage: 80 MILLIGRAM, QD
     Route: 048
     Dates: start: 202411

REACTIONS (8)
  - Loss of consciousness [Unknown]
  - Nausea [Unknown]
  - Diarrhoea [Unknown]
  - Flatulence [Unknown]
  - Pruritus [Unknown]
  - Abdominal discomfort [Unknown]
  - Vomiting [Unknown]
  - Gastrointestinal pain [Unknown]
